FAERS Safety Report 5035725-0 (Version None)
Quarter: 2006Q2

REPORT INFORMATION
  Report Type: 
  Country: None (occurrence: None)
  Receive Date: 20060627
  Receipt Date: 20060501
  Transmission Date: 20061013
  Serious: Yes (Other)
  Sender: FDA-Public Use
  Company Number: US-AVENTIS-200614062US

PATIENT
  Age: 80 Year
  Sex: Female
  Weight: 80.5 kg

DRUGS (18)
  1. LANTUS [Suspect]
     Indication: DIABETES MELLITUS NON-INSULIN-DEPENDENT
     Dosage: DOSE: 15-19; DOSE UNIT: UNITS
  2. OPTICLIK (INSULIN INJECTION PEN) [Suspect]
     Dates: start: 20050101
  3. HUMALOG [Concomitant]
     Dosage: DOSE: UNK
  4. ASPIRIN [Concomitant]
     Dosage: DOSE: UNK
  5. PLAVIX [Concomitant]
     Dosage: DOSE: UNK
  6. TEVETEN [Concomitant]
     Dosage: DOSE: UNK
  7. NEXIUM [Concomitant]
     Dosage: DOSE: UNK
  8. VASOTEC [Concomitant]
     Dosage: DOSE: UNK
  9. LOPRESSOR [Concomitant]
     Dosage: DOSE: UNK
  10. CALCIUM GLUCONATE [Concomitant]
     Dosage: DOSE: UNK
  11. XANAX [Concomitant]
     Dosage: DOSE: UNK
  12. EFFEXOR XR [Concomitant]
     Dosage: DOSE: UNK
  13. AMBIEN [Concomitant]
     Dosage: DOSE: UNK
  14. COLACE [Concomitant]
     Dosage: DOSE: UNK
  15. CLARITIN [Concomitant]
     Dosage: DOSE: UNK
  16. FORTEO                                  /USA/ [Concomitant]
     Dosage: DOSE: UNK
  17. ULTRACET [Concomitant]
     Dosage: DOSE: UNK
  18. IMDUR [Concomitant]
     Dosage: DOSE: UNK

REACTIONS (5)
  - BLINDNESS [None]
  - BLOOD GLUCOSE INCREASED [None]
  - DEVICE MALFUNCTION [None]
  - MACULAR DEGENERATION [None]
  - PHARMACEUTICAL PRODUCT COMPLAINT [None]
